FAERS Safety Report 7278534-4 (Version None)
Quarter: 2011Q1

REPORT INFORMATION
  Report Type: 
  Country: None (occurrence: None)
  Receive Date: 20110207
  Receipt Date: 20110127
  Transmission Date: 20110831
  Serious: Yes (Other)
  Sender: FDA-Public Use
  Company Number: US-JNJFOC-20110200074

PATIENT
  Sex: Female
  Weight: 74.84 kg

DRUGS (4)
  1. REMICADE [Suspect]
     Indication: CROHN'S DISEASE
     Dosage: 16 INFUSIONS
     Route: 042
  2. REMICADE [Suspect]
     Dosage: 3 INFUSIONS
     Route: 042
  3. COLAZAL [Concomitant]
     Indication: CROHN'S DISEASE
  4. REMICADE [Suspect]
     Dosage: 31 INFUSIONS
     Route: 042

REACTIONS (1)
  - LYMPHOMA [None]
